FAERS Safety Report 6714866-3 (Version None)
Quarter: 2010Q2

REPORT INFORMATION
  Report Type: 
  Country: None (occurrence: None)
  Receive Date: 20100507
  Receipt Date: 20100423
  Transmission Date: 20101027
  Serious: Yes (Hospitalization, Other)
  Sender: FDA-Public Use
  Company Number: US-BAYER-200939483NA

PATIENT
  Age: 32 Year
  Sex: Female
  Weight: 76 kg

DRUGS (4)
  1. YASMIN [Suspect]
     Indication: DRUG USE FOR UNKNOWN INDICATION
     Route: 048
     Dates: start: 20060501, end: 20061001
  2. ANTIBIOTICS [Concomitant]
     Indication: DRUG USE FOR UNKNOWN INDICATION
     Route: 065
  3. UNKNOWN DRUG [Concomitant]
     Indication: ASTHMA
     Route: 065
  4. CLARITIN [Concomitant]
     Indication: DRUG USE FOR UNKNOWN INDICATION
     Route: 065

REACTIONS (5)
  - CHEST PAIN [None]
  - COAGULOPATHY [None]
  - DYSPNOEA [None]
  - INJURY [None]
  - PULMONARY EMBOLISM [None]
